FAERS Safety Report 23817694 (Version 1)
Quarter: 2024Q2

REPORT INFORMATION
  Report Type: Spontaneous
  Country: US (occurrence: US)
  Receive Date: 20240506
  Receipt Date: 20240506
  Transmission Date: 20240716
  Serious: No
  Sender: FDA-Public Use
  Company Number: US-WT-2024-0319

PATIENT
  Age: 69 Year
  Sex: Male

DRUGS (5)
  1. LUNESTA [Suspect]
     Active Substance: ESZOPICLONE
     Indication: Insomnia
     Route: 065
  2. CYMBALTA [Concomitant]
     Active Substance: DULOXETINE HYDROCHLORIDE
     Dosage: 30 MG
     Route: 065
  3. GABAPENTIN [Concomitant]
     Active Substance: GABAPENTIN
     Dosage: 300 MG
     Route: 065
  4. ELIQUIS [Concomitant]
     Active Substance: APIXABAN
     Dosage: 5 MG
     Route: 065
  5. BIKTARVY [Concomitant]
     Active Substance: BICTEGRAVIR SODIUM\EMTRICITABINE\TENOFOVIR ALAFENAMIDE FUMARATE
     Route: 065

REACTIONS (2)
  - Insomnia [Not Recovered/Not Resolved]
  - Somnambulism [Recovered/Resolved]

NARRATIVE: CASE EVENT DATE: 20231213
